FAERS Safety Report 4707430-9 (Version None)
Quarter: 2005Q3

REPORT INFORMATION
  Report Type: 
  Country: None (occurrence: None)
  Receive Date: 20050706
  Receipt Date: 20050629
  Transmission Date: 20060218
  Serious: Yes (Hospitalization)
  Sender: FDA-Public Use
  Company Number: PHHO2005JP10500

PATIENT
  Age: 73 Year
  Sex: Female

DRUGS (2)
  1. DIOVAN [Suspect]
     Indication: HYPERTENSION
     Dosage: 80 MG, QD
     Route: 048
     Dates: start: 20021105, end: 20041201
  2. CONIEL [Concomitant]
     Indication: HYPERTENSION

REACTIONS (2)
  - CONTUSION [None]
  - FALL [None]
